APPROVED DRUG PRODUCT: PENTAMIDINE ISETHIONATE
Active Ingredient: PENTAMIDINE ISETHIONATE
Strength: 300MG/VIAL
Dosage Form/Route: FOR SOLUTION;INHALATION
Application: A206667 | Product #001 | TE Code: AN
Applicant: SETON PHARMACEUTICALS LLC
Approved: Apr 24, 2019 | RLD: No | RS: No | Type: RX